FAERS Safety Report 19324901 (Version 1)
Quarter: 2021Q2

REPORT INFORMATION
  Report Type: Report from Study
  Country: IT (occurrence: IT)
  Receive Date: 20210528
  Receipt Date: 20210528
  Transmission Date: 20210717
  Serious: Yes (Other)
  Sender: FDA-Public Use
  Company Number: IT-ACCORD-226216

PATIENT
  Age: 53 Year
  Sex: Male

DRUGS (3)
  1. SOLDESAM [Concomitant]
     Active Substance: DEXAMETHASONE
     Dates: start: 20210301, end: 20210301
  2. OXALIPLATIN. [Suspect]
     Active Substance: OXALIPLATIN
     Indication: COLON NEOPLASM
     Route: 042
     Dates: start: 20210301, end: 20210301
  3. ONDANSETRON KABI [Concomitant]
     Active Substance: ONDANSETRON
     Dosage: 2 MG / ML, SOLUTION FOR INJECTION
     Dates: start: 20210301, end: 20210301

REACTIONS (3)
  - Sensation of foreign body [Recovering/Resolving]
  - Paraesthesia [Recovering/Resolving]
  - Hypoaesthesia oral [Recovering/Resolving]

NARRATIVE: CASE EVENT DATE: 20210301
